FAERS Safety Report 9842197 (Version 4)
Quarter: 2014Q1

REPORT INFORMATION
  Report Type: Report from Study
  Country: CO (occurrence: CO)
  Receive Date: 20140124
  Receipt Date: 20140305
  Transmission Date: 20141002
  Serious: Yes (Other)
  Sender: FDA-Public Use
  Company Number: CO-AMGEN-COLCT2013091911

PATIENT
  Age: 44 Year
  Sex: Male

DRUGS (7)
  1. ETANERCEPT [Suspect]
     Indication: PRODUCT USED FOR UNKNOWN INDICATION
     Dosage: 50 MG, QWK
     Route: 065
     Dates: start: 20080218, end: 20080603
  2. ETANERCEPT [Suspect]
     Dosage: 25 MG, QWK
     Route: 065
     Dates: start: 20080701, end: 20090428
  3. ETANERCEPT [Suspect]
     Dosage: 50 MG, QWK
     Route: 065
     Dates: start: 20110106, end: 20110818
  4. ETANERCEPT [Suspect]
     Dosage: 50 MG, QWK
     Route: 065
     Dates: start: 20121002
  5. METHOTREXATE                       /00113802/ [Concomitant]
     Indication: RHEUMATOID ARTHRITIS
     Dosage: 2.5 MG, UNK
     Route: 048
     Dates: start: 2005
  6. LEFLUNOMIDE [Concomitant]
     Indication: RHEUMATOID ARTHRITIS
     Dosage: 20 MG, UNK
     Route: 048
     Dates: start: 2005
  7. CHLOROQUINE [Concomitant]
     Indication: TUBERCULOSIS
     Dosage: 25 MG, UNK
     Route: 048
     Dates: start: 2005

REACTIONS (5)
  - Lacrimation increased [Unknown]
  - Sinusitis [Recovered/Resolved]
  - Nasal congestion [Unknown]
  - Latent tuberculosis [Recovered/Resolved]
  - Ligament rupture [Recovered/Resolved]
